FAERS Safety Report 5804807-5 (Version None)
Quarter: 2008Q3

REPORT INFORMATION
  Report Type: 
  Country: None (occurrence: None)
  Receive Date: 20080709
  Receipt Date: 20080627
  Transmission Date: 20090109
  Serious: Yes (Other)
  Sender: FDA-Public Use
  Company Number: JP-PFIZER INC-2008034483

PATIENT
  Sex: Female

DRUGS (4)
  1. CELECOX [Suspect]
     Indication: OSTEOARTHRITIS
     Route: 048
     Dates: start: 20080304, end: 20080316
  2. VALSARTAN [Concomitant]
     Indication: HYPERTENSION
     Dosage: DAILY DOSE:40MG-FREQ:DAILY
     Route: 048
     Dates: start: 20080206
  3. TAKEPRON [Concomitant]
     Indication: REFLUX OESOPHAGITIS
     Dosage: DAILY DOSE:15MG-FREQ:QD
     Route: 048
     Dates: start: 20080206
  4. CYANOCOBALAMIN [Concomitant]
     Route: 048
     Dates: start: 20080206

REACTIONS (2)
  - GRANULOCYTOPENIA [None]
  - RASH [None]
